FAERS Safety Report 7070423-3 (Version None)
Quarter: 2010Q4

REPORT INFORMATION
  Report Type: 
  Country: None (occurrence: None)
  Receive Date: 20101029
  Receipt Date: 20101022
  Transmission Date: 20110411
  Serious: Yes (Death, Hospitalization)
  Sender: FDA-Public Use
  Company Number: BR-BIOGENIDEC-2010BI036794

PATIENT
  Age: 69 Year
  Sex: Male

DRUGS (1)
  1. AVONEX [Suspect]
     Indication: MULTIPLE SCLEROSIS
     Route: 030
     Dates: start: 20080701, end: 20100101

REACTIONS (7)
  - APHAGIA [None]
  - ASTHENIA [None]
  - BEDRIDDEN [None]
  - CARDIAC DISORDER [None]
  - MALAISE [None]
  - MULTIPLE SCLEROSIS [None]
  - NASOPHARYNGITIS [None]
